FAERS Safety Report 7451375-0 (Version None)
Quarter: 2011Q2

REPORT INFORMATION
  Report Type: 
  Country: None (occurrence: None)
  Receive Date: 20110422
  Receipt Date: 20110407
  Transmission Date: 20111010
  Serious: Yes (Death)
  Sender: FDA-Public Use
  Company Number: 023909

PATIENT
  Sex: Male
  Weight: 53.2 kg

DRUGS (5)
  1. CIMZIA [Suspect]
     Indication: CROHN'S DISEASE
     Dosage: 200 MG 1X/2 WEEKS SUBCUTANEOUS; 400 MG 2X/MONTH SUBCUTANENOUS; 200 MG 2X/MONTH SUBCUTANEOUS
     Route: 058
     Dates: start: 20100108
  2. CIMZIA [Suspect]
     Indication: CROHN'S DISEASE
     Dosage: 200 MG 1X/2 WEEKS SUBCUTANEOUS; 400 MG 2X/MONTH SUBCUTANENOUS; 200 MG 2X/MONTH SUBCUTANEOUS
     Route: 058
     Dates: start: 20091127, end: 20091211
  3. CIMZIA [Suspect]
     Indication: CROHN'S DISEASE
     Dosage: 200 MG 1X/2 WEEKS SUBCUTANEOUS; 400 MG 2X/MONTH SUBCUTANENOUS; 200 MG 2X/MONTH SUBCUTANEOUS
     Route: 058
     Dates: start: 20091120
  4. ENTOCORT EC [Concomitant]
  5. BUDESONIDE [Concomitant]

REACTIONS (1)
  - DEATH [None]
